FAERS Safety Report 6657066-8 (Version None)
Quarter: 2010Q1

REPORT INFORMATION
  Report Type: 
  Country: None (occurrence: None)
  Receive Date: 20100330
  Receipt Date: 20100320
  Transmission Date: 20100710
  Serious: Yes (Hospitalization, Other)
  Sender: FDA-Public Use
  Company Number: DE-ABBOTT-10P-062-0621494-00

PATIENT
  Sex: Male
  Weight: 90 kg

DRUGS (14)
  1. HUMIRA [Suspect]
     Indication: PSORIASIS
     Route: 058
     Dates: start: 20090702, end: 20091215
  2. HUMIRA [Suspect]
     Indication: PSORIATIC ARTHROPATHY
  3. CLOBETASOL PROPIONATE [Concomitant]
     Indication: PSORIASIS
     Route: 061
     Dates: start: 20060101
  4. CLARELUX [Concomitant]
     Indication: PSORIASIS
     Dosage: FOAM
     Route: 061
     Dates: start: 20070101
  5. HUMALOG [Concomitant]
     Indication: DIABETES MELLITUS
     Dosage: 12-10-10 IU
     Route: 058
  6. PANTOPRAZOLE SODIUM [Concomitant]
     Indication: PROPHYLAXIS AGAINST GASTROINTESTINAL ULCER
     Route: 048
  7. PROCHLORPERAZINE [Concomitant]
     Indication: DRUG USE FOR UNKNOWN INDICATION
     Dosage: 4 X 1 G
  8. LACTULOSE [Concomitant]
     Indication: DRUG USE FOR UNKNOWN INDICATION
     Dosage: 1 TABLESPOON 3 IN 1 D
     Route: 048
  9. MOXONIDIN [Concomitant]
     Indication: DRUG USE FOR UNKNOWN INDICATION
     Route: 048
  10. MICARDIS [Concomitant]
     Indication: DRUG USE FOR UNKNOWN INDICATION
  11. ARCOXIA [Concomitant]
     Indication: DRUG USE FOR UNKNOWN INDICATION
  12. TORSEMIDE [Concomitant]
     Indication: DRUG USE FOR UNKNOWN INDICATION
  13. PROCORALAN [Concomitant]
     Indication: DRUG USE FOR UNKNOWN INDICATION
  14. GODAMED [Concomitant]
     Indication: DRUG USE FOR UNKNOWN INDICATION
     Dates: end: 20100101

REACTIONS (7)
  - ANAEMIA [None]
  - HEPATIC NEOPLASM [None]
  - HEPATIC NEOPLASM MALIGNANT [None]
  - MUSCLE DISORDER [None]
  - OBSTRUCTION GASTRIC [None]
  - PLEURAL EFFUSION [None]
  - UMBILICAL HERNIA [None]
